FAERS Safety Report 18394189 (Version 2)
Quarter: 2020Q4

REPORT INFORMATION
  Report Type: Spontaneous
  Country: RU (occurrence: RU)
  Receive Date: 20201016
  Receipt Date: 20201202
  Transmission Date: 20210114
  Serious: Yes (Hospitalization)
  Sender: FDA-Public Use
  Company Number: RU-SA-2020SA157710

PATIENT

DRUGS (6)
  1. INSULIN ASPART [Suspect]
     Active Substance: INSULIN ASPART
     Dosage: 1 IU PER 1 BU 3 TIMES PER DAY
     Route: 058
     Dates: start: 202006
  2. THIOCTIC ACID [Concomitant]
     Active Substance: .ALPHA.-LIPOIC ACID
     Indication: TYPE 1 DIABETES MELLITUS
     Dosage: 2 DF, QD
     Route: 048
     Dates: start: 202006
  3. TOUJEO [Suspect]
     Active Substance: INSULIN GLARGINE
     Indication: TYPE 1 DIABETES MELLITUS
     Dosage: 10 IU, QD
     Route: 058
     Dates: start: 2017
  4. PHOSPHOGLIV [GLYCYRRHIZIC ACID] [Concomitant]
     Indication: LIVER INJURY
     Dosage: 2 DF, TID
     Route: 048
     Dates: start: 202006
  5. INSULIN ASPART [Suspect]
     Active Substance: INSULIN ASPART
     Indication: TYPE 1 DIABETES MELLITUS
     Dosage: 1 IU PER 1 CU 3 TIMES PER DAY
     Route: 058
     Dates: end: 202006
  6. THIOCTIC ACID [Concomitant]
     Active Substance: .ALPHA.-LIPOIC ACID
     Dosage: 600 MG
     Route: 065

REACTIONS (5)
  - Nasopharyngitis [Recovered/Resolved]
  - Depression [Not Recovered/Not Resolved]
  - Suspected COVID-19 [Recovered/Resolved]
  - Blood glucose increased [Recovered/Resolved]
  - Hyperglycaemia [Recovered/Resolved]

NARRATIVE: CASE EVENT DATE: 2020
